FAERS Safety Report 10647186 (Version 2)
Quarter: 2014Q4

REPORT INFORMATION
  Report Type: Spontaneous
  Country: US (occurrence: US)
  Receive Date: 20141211
  Receipt Date: 20141211
  Transmission Date: 20150529
  Serious: No
  Sender: FDA-Public Use
  Company Number: US-INCYTE CORPORATION-2014IN002476

PATIENT
  Sex: Female
  Weight: 61.22 kg

DRUGS (2)
  1. JAKAFI [Suspect]
     Active Substance: RUXOLITINIB
     Indication: MYELOFIBROSIS
     Dosage: 25 MG, BID (TUES, THURS, AND SAT)
     Route: 048
     Dates: start: 20131220
  2. JAKAFI [Suspect]
     Active Substance: RUXOLITINIB
     Dosage: 20 MG, BID (MON, WED, AND FRI)
     Route: 048
     Dates: start: 20131220

REACTIONS (1)
  - Confusional state [Unknown]
